FAERS Safety Report 14534263 (Version 1)
Quarter: 2018Q1

REPORT INFORMATION
  Report Type: Report from Study
  Country: US (occurrence: US)
  Receive Date: 20180215
  Receipt Date: 20180215
  Transmission Date: 20180509
  Serious: Yes (Disabling)
  Sender: FDA-Public Use
  Company Number: PHHO2017US008532

PATIENT
  Age: 63 Year
  Sex: Female
  Weight: 46.7 kg

DRUGS (2)
  1. GSK1120212 [Suspect]
     Active Substance: TRAMETINIB
     Indication: BRAF GENE MUTATION
     Dosage: 40.5 MG, UNK
     Route: 048
     Dates: start: 20170217, end: 20170310
  2. MORPHINE SULFATE. [Concomitant]
     Active Substance: MORPHINE SULFATE
     Indication: PRODUCT USED FOR UNKNOWN INDICATION
     Route: 065

REACTIONS (1)
  - Muscular weakness [Recovering/Resolving]

NARRATIVE: CASE EVENT DATE: 20170306
